FAERS Safety Report 15111318 (Version 3)
Quarter: 2019Q3

REPORT INFORMATION
  Report Type: Spontaneous
  Country: US (occurrence: US)
  Receive Date: 20180705
  Receipt Date: 20190715
  Transmission Date: 20191004
  Serious: No
  Sender: FDA-Public Use
  Company Number: US-SA-2018SA171326

PATIENT
  Sex: Female

DRUGS (1)
  1. LANTUS [Suspect]
     Active Substance: INSULIN GLARGINE
     Dosage: 35 U, QD
     Dates: start: 201710

REACTIONS (3)
  - Incorrect dose administered by device [Unknown]
  - Blood glucose increased [Unknown]
  - Device difficult to use [Unknown]
